FAERS Safety Report 4438852-1 (Version None)
Quarter: 2004Q3

REPORT INFORMATION
  Report Type: 
  Country: None (occurrence: None)
  Receive Date: 20040830
  Receipt Date: 20040816
  Transmission Date: 20050211
  Serious: Yes (Hospitalization, Other)
  Sender: FDA-Public Use
  Company Number: 2004-03640

PATIENT
  Age: 56 Year
  Sex: Female
  Weight: 56.7 kg

DRUGS (10)
  1. CARISOPRODOL [Suspect]
     Indication: MUSCLE SPASMS
     Dosage: 2 TABLET, QID, ORAL; 2 TABLET, QID, THEN TAPERED, ORAL;  2 TABLET, QID, ORAL
     Route: 048
     Dates: start: 20010101, end: 20030801
  2. CARISOPRODOL [Suspect]
     Indication: MYALGIA
     Dosage: 2 TABLET, QID, ORAL; 2 TABLET, QID, THEN TAPERED, ORAL;  2 TABLET, QID, ORAL
     Route: 048
     Dates: start: 20010101, end: 20030801
  3. CARISOPRODOL [Suspect]
     Indication: MUSCLE SPASMS
     Dosage: 2 TABLET, QID, ORAL; 2 TABLET, QID, THEN TAPERED, ORAL;  2 TABLET, QID, ORAL
     Route: 048
     Dates: start: 20030801, end: 20040809
  4. CARISOPRODOL [Suspect]
     Indication: MYALGIA
     Dosage: 2 TABLET, QID, ORAL; 2 TABLET, QID, THEN TAPERED, ORAL;  2 TABLET, QID, ORAL
     Route: 048
     Dates: start: 20030801, end: 20040809
  5. CARISOPRODOL [Suspect]
     Indication: MUSCLE SPASMS
     Dosage: 2 TABLET, QID, ORAL; 2 TABLET, QID, THEN TAPERED, ORAL;  2 TABLET, QID, ORAL
     Route: 048
     Dates: start: 20040811
  6. CARISOPRODOL [Suspect]
     Indication: MYALGIA
     Dosage: 2 TABLET, QID, ORAL; 2 TABLET, QID, THEN TAPERED, ORAL;  2 TABLET, QID, ORAL
     Route: 048
     Dates: start: 20040811
  7. MORPHINE SULFATE [Concomitant]
  8. INDERAL [Concomitant]
  9. DARVOCET-N 100 (PARACETAMOL) [Concomitant]
  10. RESTORIL [Concomitant]

REACTIONS (3)
  - DRUG WITHDRAWAL SYNDROME [None]
  - HALLUCINATION, AUDITORY [None]
  - PSYCHOTIC DISORDER [None]
